FAERS Safety Report 11697116 (Version 2)
Quarter: 2015Q4

REPORT INFORMATION
  Report Type: Spontaneous
  Country: US (occurrence: US)
  Receive Date: 20151104
  Receipt Date: 20151125
  Transmission Date: 20160304
  Serious: No
  Sender: FDA-Public Use
  Company Number: US-ASTRAZENECA-2015SF03559

PATIENT
  Age: 966 Month
  Sex: Female
  Weight: 90.7 kg

DRUGS (1)
  1. SYMBICORT [Suspect]
     Active Substance: BUDESONIDE\FORMOTEROL FUMARATE DIHYDRATE
     Indication: DYSPNOEA
     Dosage: 160/4.5 UG TWO PUFFS TWO TIMES A DAY
     Route: 055
     Dates: start: 2015

REACTIONS (7)
  - Body height decreased [Unknown]
  - Drug dose omission [Unknown]
  - Device issue [Unknown]
  - Activities of daily living impaired [Unknown]
  - Weight increased [Unknown]
  - Arthritis [Unknown]
  - Product quality issue [Unknown]

NARRATIVE: CASE EVENT DATE: 201510
